FAERS Safety Report 14512111 (Version 2)
Quarter: 2018Q2

REPORT INFORMATION
  Report Type: Spontaneous
  Country: AU (occurrence: AU)
  Receive Date: 20180209
  Receipt Date: 20180406
  Transmission Date: 20180711
  Serious: Yes (Other)
  Sender: FDA-Public Use
  Company Number: AU-PFIZER INC-2018055390

PATIENT
  Age: 41 Year
  Sex: Female
  Weight: 160 kg

DRUGS (6)
  1. HEPARIN SODIUM. [Suspect]
     Active Substance: HEPARIN SODIUM
     Indication: THROMBOSIS PROPHYLAXIS
     Dosage: 50 IU, UNK (1:100)
  2. DALTEPARIN [Suspect]
     Active Substance: DALTEPARIN
     Dosage: 500 IU, UNK (1:10)
  3. ENOXAPARIN [Suspect]
     Active Substance: ENOXAPARIN
     Indication: DEEP VEIN THROMBOSIS
     Dosage: 0.2 MG, UNK (1:100)
  4. HEPARIN SODIUM. [Suspect]
     Active Substance: HEPARIN SODIUM
     Dosage: 500 IU, UNK (1:10)
  5. ENOXAPARIN [Suspect]
     Active Substance: ENOXAPARIN
     Dosage: 2 MG, UNK (1:10)
  6. DALTEPARIN [Suspect]
     Active Substance: DALTEPARIN
     Dosage: 50 IU, UNK (1:100)

REACTIONS (2)
  - Type IV hypersensitivity reaction [Unknown]
  - Injection site plaque [Unknown]
